FAERS Safety Report 6191719-3 (Version None)
Quarter: 2009Q2

REPORT INFORMATION
  Report Type: 
  Country: None (occurrence: None)
  Receive Date: 20090515
  Receipt Date: 20090513
  Transmission Date: 20091009
  Serious: Yes (Hospitalization, Other)
  Sender: FDA-Public Use
  Company Number: ID-ROXANE LABORATORIES, INC.-2009-RO-00497RO

PATIENT
  Age: 61 Year
  Sex: Female

DRUGS (12)
  1. CYCLOPHOSPHAMIDE [Suspect]
     Indication: BREAST CANCER
  2. CYCLOPHOSPHAMIDE [Suspect]
     Route: 048
  3. CYCLOPHOSPHAMIDE [Suspect]
  4. DOXETACEL [Suspect]
     Indication: BREAST CANCER
  5. DOXORUBICIN HCL [Suspect]
     Indication: BREAST CANCER
  6. EPIRUBICIN [Suspect]
     Indication: BREAST CANCER
  7. FILGRASTIM [Concomitant]
     Indication: NEUTROPENIC COLITIS
     Dosage: 300MG
     Route: 058
  8. CEFEPIME [Concomitant]
     Indication: NEUTROPENIC COLITIS
     Route: 042
  9. RED BLOOD CELLS [Concomitant]
     Indication: NEUTROPENIC COLITIS
  10. METHOTREXATE [Concomitant]
     Indication: BREAST CANCER
     Route: 042
  11. FLUOROURACIL [Concomitant]
     Indication: BREAST CANCER
     Route: 042
  12. TPN [Concomitant]
     Indication: NEUTROPENIC COLITIS
     Route: 051

REACTIONS (2)
  - DRUG INEFFECTIVE [None]
  - NEUTROPENIC COLITIS [None]
